FAERS Safety Report 21650167 (Version 1)
Quarter: 2022Q4

REPORT INFORMATION
  Report Type: Spontaneous
  Country: US (occurrence: None)
  Receive Date: 20221123
  Receipt Date: 20221123
  Transmission Date: 20230113
  Serious: Yes (Other)
  Sender: FDA-Public Use
  Company Number: None

PATIENT
  Age: 60 Year
  Sex: Male
  Weight: 82.55 kg

DRUGS (1)
  1. HEMLIBRA [Suspect]
     Active Substance: EMICIZUMAB-KXWH

REACTIONS (5)
  - Drug hypersensitivity [None]
  - Injection site reaction [None]
  - Injection site irritation [None]
  - Injection site pain [None]
  - Injection site warmth [None]

NARRATIVE: CASE EVENT DATE: 20221116
